FAERS Safety Report 6046945-0 (Version None)
Quarter: 2009Q1

REPORT INFORMATION
  Report Type: 
  Country: None (occurrence: None)
  Receive Date: 20090115
  Receipt Date: 20090105
  Transmission Date: 20090719
  Serious: Yes (Hospitalization)
  Sender: FDA-Public Use
  Company Number: AEUSA200900001

PATIENT
  Sex: Female

DRUGS (1)
  1. HYPERRHO [Suspect]
     Indication: UTERINE DILATION AND CURETTAGE
     Dosage: 1500 IU;1X;IM
     Route: 030
     Dates: start: 20090105, end: 20090105

REACTIONS (2)
  - CONVULSION [None]
  - INCONTINENCE [None]
